FAERS Safety Report 6035553-3 (Version None)
Quarter: 2009Q1

REPORT INFORMATION
  Report Type: 
  Country: None (occurrence: None)
  Receive Date: 20090113
  Receipt Date: 20081205
  Transmission Date: 20090719
  Serious: No
  Sender: FDA-Public Use
  Company Number: US-BAYER-200840397NA

PATIENT
  Age: 27 Year
  Sex: Female

DRUGS (2)
  1. MIRENA [Suspect]
     Indication: CONTRACEPTION
     Route: 015
     Dates: start: 20080624
  2. ATENOLOL [Concomitant]
     Indication: HYPERTENSION

REACTIONS (6)
  - COITAL BLEEDING [None]
  - IUCD COMPLICATION [None]
  - MENOMETRORRHAGIA [None]
  - PROCEDURAL PAIN [None]
  - VAGINAL DISCHARGE [None]
  - VAGINAL HAEMORRHAGE [None]
